FAERS Safety Report 13867450 (Version 5)
Quarter: 2017Q4

REPORT INFORMATION
  Report Type: Report from Study
  Country: US (occurrence: US)
  Receive Date: 20170814
  Receipt Date: 20171122
  Transmission Date: 20180320
  Serious: Yes (Hospitalization)
  Sender: FDA-Public Use
  Company Number: US-ACTELION-A-US2016-142866

PATIENT
  Age: 65 Year
  Sex: Female
  Weight: 81.63 kg

DRUGS (18)
  1. DOFETILIDE. [Concomitant]
     Active Substance: DOFETILIDE
     Dosage: UNK
     Dates: start: 20171017
  2. PANTOPRAZOLE [Concomitant]
     Active Substance: PANTOPRAZOLE
     Dosage: UNK
     Dates: start: 20150105
  3. UPTRAVI [Suspect]
     Active Substance: SELEXIPAG
     Dosage: 1200 MCG, BID
     Route: 048
  4. UPTRAVI [Suspect]
     Active Substance: SELEXIPAG
     Dosage: 800 UNK, UNK
     Route: 048
  5. OXYGEN. [Concomitant]
     Active Substance: OXYGEN
  6. UPTRAVI [Suspect]
     Active Substance: SELEXIPAG
     Dosage: 600 MCG, BID
     Route: 048
     Dates: start: 20160726
  7. UPTRAVI [Suspect]
     Active Substance: SELEXIPAG
     Dosage: 800 MCG, QD
     Route: 048
  8. UPTRAVI [Suspect]
     Active Substance: SELEXIPAG
     Indication: PULMONARY HYPERTENSION
     Dosage: 1000 MCG, BID
     Route: 048
     Dates: start: 20160708
  9. UPTRAVI [Suspect]
     Active Substance: SELEXIPAG
     Dosage: 200 UNK, UNK
     Route: 048
  10. ELIQUIS [Concomitant]
     Active Substance: APIXABAN
  11. FUROSEMIDE. [Concomitant]
     Active Substance: FUROSEMIDE
  12. LORAZEPAM. [Concomitant]
     Active Substance: LORAZEPAM
     Dosage: UNK
     Dates: start: 20160125
  13. SILDENAFIL. [Concomitant]
     Active Substance: SILDENAFIL
  14. REVATIO [Concomitant]
     Active Substance: SILDENAFIL CITRATE
  15. APIXABAN [Concomitant]
     Active Substance: APIXABAN
     Dosage: UNK
     Dates: start: 20150609
  16. MAGNESIUM CARBONATE [Concomitant]
     Active Substance: MAGNESIUM CARBONATE
     Dosage: UNK
     Dates: start: 201707
  17. POTASSIUM CHLORIDE. [Concomitant]
     Active Substance: POTASSIUM CHLORIDE
     Dosage: UNK
     Dates: start: 201707
  18. SPIRONOLACTONE. [Concomitant]
     Active Substance: SPIRONOLACTONE

REACTIONS (22)
  - Atrial fibrillation [Recovered/Resolved]
  - Blood potassium decreased [Unknown]
  - Nasal congestion [Unknown]
  - Neck pain [Unknown]
  - Epistaxis [Unknown]
  - Diarrhoea [Unknown]
  - Paraesthesia [Unknown]
  - Chills [Unknown]
  - Blood magnesium decreased [Unknown]
  - Peripheral swelling [Recovering/Resolving]
  - Headache [Unknown]
  - Blood electrolytes decreased [Unknown]
  - Cough [Unknown]
  - Dyspnoea [Unknown]
  - Palpitations [Unknown]
  - Myalgia [Unknown]
  - Dizziness [Unknown]
  - Fatigue [Unknown]
  - Tinnitus [Unknown]
  - Pollakiuria [Unknown]
  - Nasopharyngitis [Unknown]
  - Pain in jaw [Recovering/Resolving]
